FAERS Safety Report 7588677-3 (Version None)
Quarter: 2011Q3

REPORT INFORMATION
  Report Type: 
  Country: None (occurrence: None)
  Receive Date: 20110705
  Receipt Date: 20110622
  Transmission Date: 20111222
  Serious: Yes (Hospitalization, Other)
  Sender: FDA-Public Use
  Company Number: US-ELI_LILLY_AND_COMPANY-US201002003175

PATIENT
  Sex: Female

DRUGS (6)
  1. FORTEO [Suspect]
     Indication: OSTEOPOROSIS
     Dosage: 20 UG, DAILY (1/D)
     Route: 065
     Dates: start: 20100204
  2. CALCIUM CARBONATE [Concomitant]
     Dosage: UNK, 1200 TO 1500MG DAILY
     Route: 065
  3. FORTEO [Suspect]
     Dosage: 20 UG, DAILY (1/D)
     Route: 065
  4. SYNTHROID [Concomitant]
     Indication: HYPOTHYROIDISM
     Dosage: 0.112 MG, DAILY (1/D)
     Route: 065
  5. FORTEO [Suspect]
     Dosage: 20 UG, DAILY (1/D)
     Route: 065
  6. FORTEO [Suspect]
     Dosage: 20 UG, QD
     Route: 065

REACTIONS (45)
  - NECROSIS [None]
  - HERPES ZOSTER [None]
  - MYALGIA [None]
  - HYPERSENSITIVITY [None]
  - ATROPHY [None]
  - WOUND [None]
  - FLATULENCE [None]
  - EAR DISCOMFORT [None]
  - BACK PAIN [None]
  - BONE DENSITY DECREASED [None]
  - DIZZINESS [None]
  - ARTHRALGIA [None]
  - TRIGGER FINGER [None]
  - WEIGHT INCREASED [None]
  - JOINT LOCK [None]
  - LATEX ALLERGY [None]
  - INJECTION SITE HAEMATOMA [None]
  - INCORRECT DOSE ADMINISTERED [None]
  - HEADACHE [None]
  - INJECTION SITE RASH [None]
  - DIARRHOEA [None]
  - NAUSEA [None]
  - MUSCLE SPASMS [None]
  - ANAESTHETIC COMPLICATION [None]
  - DYSPHONIA [None]
  - HYPOAESTHESIA [None]
  - ERUCTATION [None]
  - IRRITABILITY [None]
  - PRURITUS [None]
  - ABDOMINAL DISCOMFORT [None]
  - CONTUSION [None]
  - INJECTION SITE INJURY [None]
  - RASH [None]
  - CATARACT [None]
  - RASH PRURITIC [None]
  - FATIGUE [None]
  - INJECTION SITE ERYTHEMA [None]
  - INJECTION SITE HAEMORRHAGE [None]
  - PAIN [None]
  - VISUAL FIELD DEFECT [None]
  - OCULAR NEOPLASM [None]
  - RHINORRHOEA [None]
  - OCULAR DISCOMFORT [None]
  - THROAT IRRITATION [None]
  - EYE PAIN [None]
